FAERS Safety Report 13284123 (Version 2)
Quarter: 2017Q1

REPORT INFORMATION
  Report Type: Spontaneous
  Country: CN (occurrence: CN)
  Receive Date: 20170301
  Receipt Date: 20170313
  Transmission Date: 20170428
  Serious: Yes (Other)
  Sender: FDA-Public Use
  Company Number: CN-PFIZER INC-2017088798

PATIENT
  Age: 30 Year
  Sex: Male
  Weight: 79 kg

DRUGS (2)
  1. STERILE WATER [Concomitant]
     Active Substance: WATER
     Dosage: 20 ML, 1X/DAY
     Route: 041
     Dates: start: 20161208, end: 20161208
  2. ZAVEDOS [Suspect]
     Active Substance: IDARUBICIN
     Indication: CHEMOTHERAPY
     Dosage: 20 MG, 1X/DAY
     Route: 041
     Dates: start: 20161208, end: 20161208

REACTIONS (1)
  - White blood cell count decreased [Unknown]

NARRATIVE: CASE EVENT DATE: 20161210
